FAERS Safety Report 24938850 (Version 2)
Quarter: 2025Q1

REPORT INFORMATION
  Report Type: Spontaneous
  Country: US (occurrence: US)
  Receive Date: 20250206
  Receipt Date: 20250210
  Transmission Date: 20250408
  Serious: Yes (Death, Other)
  Sender: PFIZER
  Company Number: US-MLMSERVICE-20250127-PI377680-00218-3

PATIENT
  Age: 99 Year
  Sex: Male

DRUGS (1)
  1. METHOTREXATE SODIUM [Suspect]
     Active Substance: METHOTREXATE SODIUM
     Indication: Rheumatoid arthritis
     Dosage: 7.5 MG, WEEKLY
     Dates: start: 20221214, end: 2023

REACTIONS (1)
  - Cutaneous T-cell lymphoma [Fatal]

NARRATIVE: CASE EVENT DATE: 20230501
